FAERS Safety Report 4679768-5 (Version None)
Quarter: 2005Q2

REPORT INFORMATION
  Report Type: 
  Country: None (occurrence: None)
  Receive Date: 20050531
  Receipt Date: 20050518
  Transmission Date: 20051028
  Serious: Yes (Hospitalization)
  Sender: FDA-Public Use
  Company Number: 2005-03-1293

PATIENT
  Age: 34 Year
  Sex: Female

DRUGS (10)
  1. POLARAMINE [Suspect]
     Indication: URTICARIA
     Dosage: 5 MG
     Dates: start: 20050301
  2. METHYLPREDNISOLONE [Suspect]
     Indication: URTICARIA
     Dosage: 80 MG
     Dates: start: 20050301
  3. AERIOUS (DESLORATADINE)                'LIKE CLARINEX' [Suspect]
     Indication: URTICARIA
     Dosage: 5 MG QD ORAL
     Route: 048
     Dates: start: 20050330, end: 20050331
  4. ALLERGENS, INSECT VENOM [Suspect]
     Indication: ALLERGENIC DESENSITISATION PROCEDURE
  5. ZYPREXA [Concomitant]
  6. ANAFRANIL [Concomitant]
  7. RIVOTRIL [Concomitant]
  8. LAROXYL [Concomitant]
  9. MEPRONIZINE [Concomitant]
  10. CORTICOSTEROIDS NOS [Concomitant]

REACTIONS (9)
  - CEREBELLAR SYNDROME [None]
  - CONFUSIONAL STATE [None]
  - COORDINATION ABNORMAL [None]
  - DEPRESSED LEVEL OF CONSCIOUSNESS [None]
  - DRUG INTERACTION [None]
  - EXTENSOR PLANTAR RESPONSE [None]
  - MIGRAINE [None]
  - NEUROLOGICAL SYMPTOM [None]
  - URTICARIA CHRONIC [None]
